FAERS Safety Report 14974807 (Version 1)
Quarter: 2018Q2

REPORT INFORMATION
  Report Type: Spontaneous
  Country: US (occurrence: US)
  Receive Date: 20180515
  Receipt Date: 20180515
  Transmission Date: 20180711
  Serious: Yes (Hospitalization)
  Sender: FDA-Public Use
  Company Number: None

PATIENT
  Sex: Female

DRUGS (10)
  1. ADEMPAS [Concomitant]
     Active Substance: RIOCIGUAT
  2. LASIX [Concomitant]
     Active Substance: FUROSEMIDE
  3. PREMARIN [Concomitant]
     Active Substance: ESTROGENS, CONJUGATED
  4. VITAMIN D3 [Concomitant]
     Active Substance: CHOLECALCIFEROL
  5. CALCIUM CARB [Concomitant]
     Active Substance: CALCIUM CARBONATE
  6. CLOBETASOL [Concomitant]
     Active Substance: CLOBETASOL
  7. FAMOTIDINE. [Concomitant]
     Active Substance: FAMOTIDINE
  8. FOLIC ACID. [Concomitant]
     Active Substance: FOLIC ACID
  9. OPSUMIT [Concomitant]
     Active Substance: MACITENTAN
  10. PROLIA [Suspect]
     Active Substance: DENOSUMAB
     Indication: OSTEOPOROSIS
     Dosage: 60 MG ONCE-EVERY 6MONTHS; SUBCUTANEOUS?
     Route: 058
     Dates: start: 20151217

REACTIONS (1)
  - Hospitalisation [None]
